FAERS Safety Report 10166545 (Version 1)
Quarter: 2014Q2

REPORT INFORMATION
  Report Type: Spontaneous
  Country: US (occurrence: US)
  Receive Date: 20140512
  Receipt Date: 20140512
  Transmission Date: 20141212
  Serious: No
  Sender: FDA-Public Use
  Company Number: US-JNJFOC-20140502110

PATIENT
  Sex: Female

DRUGS (1)
  1. UNSPECIFIED GENERIC FENTANYL [Suspect]
     Indication: PAIN
     Route: 065

REACTIONS (2)
  - Application site rash [Not Recovered/Not Resolved]
  - Wrong technique in drug usage process [Not Recovered/Not Resolved]
